FAERS Safety Report 14897402 (Version 1)
Quarter: 2018Q2

REPORT INFORMATION
  Report Type: Spontaneous
  Country: IL (occurrence: IL)
  Receive Date: 20180515
  Receipt Date: 20180515
  Transmission Date: 20180711
  Serious: Yes (Life-Threatening, Hospitalization)
  Sender: FDA-Public Use
  Company Number: IL-B.I. PHARMACEUTICALS,INC./RIDGEFIELD-2018-BI-025950

PATIENT
  Age: 45 Year
  Sex: Male

DRUGS (1)
  1. JARDIANCE DUO [Suspect]
     Active Substance: EMPAGLIFLOZIN\METFORMIN HYDROCHLORIDE
     Indication: DIABETES MELLITUS
     Dosage: DOSE 12.5/1000 MILLIGRAM
     Route: 065
     Dates: start: 20180501

REACTIONS (6)
  - Polydipsia [Recovering/Resolving]
  - Blood glucose increased [Recovering/Resolving]
  - Head injury [Recovered/Resolved]
  - Diabetic ketoacidosis [Recovering/Resolving]
  - Loss of consciousness [Recovered/Resolved]
  - Polyuria [Recovering/Resolving]

NARRATIVE: CASE EVENT DATE: 20180503
